FAERS Safety Report 18288679 (Version 2)
Quarter: 2020Q4

REPORT INFORMATION
  Report Type: Spontaneous
  Country: US (occurrence: US)
  Receive Date: 20200921
  Receipt Date: 20201007
  Transmission Date: 20210113
  Serious: Yes (Hospitalization)
  Sender: FDA-Public Use
  Company Number: US-JNJFOC-20200925431

PATIENT
  Age: 72 Year
  Sex: Female
  Weight: 121 kg

DRUGS (1)
  1. PEPCID AC [Suspect]
     Active Substance: FAMOTIDINE
     Indication: GASTRITIS
     Route: 048
     Dates: end: 20200831

REACTIONS (6)
  - Overdose [Unknown]
  - Off label use [Unknown]
  - Chest pain [Unknown]
  - Product use in unapproved indication [Unknown]
  - Dizziness [Unknown]
  - Cerebral haemorrhage [Unknown]

NARRATIVE: CASE EVENT DATE: 2020
